FAERS Safety Report 10866299 (Version 1)
Quarter: 2015Q1

REPORT INFORMATION
  Report Type: Spontaneous
  Country: US (occurrence: None)
  Receive Date: 20150220
  Receipt Date: 20150220
  Transmission Date: 20150721
  Serious: Yes (Hospitalization, Other)
  Sender: FDA-Public Use
  Company Number: 2015JUB00047

PATIENT
  Age: 67 Year
  Sex: Female
  Weight: 79.8 kg

DRUGS (2)
  1. LOSARTAN POTASSIUM AND HYDROCHLOROTHIAZIDE [Suspect]
     Active Substance: HYDROCHLOROTHIAZIDE\LOSARTAN POTASSIUM
     Indication: HYPERTENSION
     Route: 048
     Dates: start: 20141228, end: 20150209
  2. CLONIDINE. [Concomitant]
     Active Substance: CLONIDINE

REACTIONS (10)
  - Blood pressure increased [None]
  - Product substitution issue [None]
  - Blood creatine phosphokinase increased [None]
  - Pupils unequal [None]
  - Angina pectoris [None]
  - Extra dose administered [None]
  - Facial pain [None]
  - Cardiac arrest [None]
  - Musculoskeletal discomfort [None]
  - Miosis [None]

NARRATIVE: CASE EVENT DATE: 201412
